FAERS Safety Report 19924969 (Version 3)
Quarter: 2021Q4

REPORT INFORMATION
  Report Type: Report from Study
  Country: GB (occurrence: GB)
  Receive Date: 20211006
  Receipt Date: 20211026
  Transmission Date: 20220303
  Serious: Yes (Death, Life-Threatening)
  Sender: FDA-Public Use
  Company Number: GB-PFIZER INC-202101263334

PATIENT
  Age: 49 Year
  Sex: Male

DRUGS (3)
  1. MYLOTARG [Suspect]
     Active Substance: GEMTUZUMAB OZOGAMICIN
     Indication: Acute myeloid leukaemia
     Dosage: 3 MG/M2
     Route: 041
     Dates: start: 20210901, end: 20210907
  2. CYTARABINE [Suspect]
     Active Substance: CYTARABINE
     Indication: Acute myeloid leukaemia
     Dosage: UNK
     Dates: start: 20210901, end: 20210910
  3. DAUNORUBICIN [Suspect]
     Active Substance: DAUNORUBICIN
     Indication: Acute myeloid leukaemia
     Dosage: UNK
     Dates: start: 20210901, end: 20210905

REACTIONS (4)
  - Haemorrhage [Recovered/Resolved]
  - Coma scale abnormal [Recovered/Resolved]
  - Extensor plantar response [Recovered/Resolved]
  - Mydriasis [Recovered/Resolved]

NARRATIVE: CASE EVENT DATE: 20210918
